FAERS Safety Report 8770325 (Version 1)
Quarter: 2012Q4

REPORT INFORMATION
  Report Type: 
  Country: IS (occurrence: IS)
  Receive Date: 20120906
  Receipt Date: 20120906
  Transmission Date: 20130627
  Serious: Yes (Hospitalization, Other)
  Sender: FDA-Public Use
  Company Number: IS-PFIZER INC-2012215296

PATIENT
  Age: 59 Year
  Sex: Female

DRUGS (7)
  1. ATORVASTATIN CALCIUM [Suspect]
     Dosage: UNK
  2. ESTRADIOL [Concomitant]
  3. ENALAPRIL [Concomitant]
  4. ESOMEPRAZOLE [Concomitant]
  5. AMILORIDE W/HYDROCHLOROTHIAZIDE [Concomitant]
  6. ASPIRIN [Concomitant]
  7. METOPROLOL [Concomitant]

REACTIONS (2)
  - Drug-induced liver injury [Unknown]
  - Jaundice [Unknown]
